FAERS Safety Report 7439293-5 (Version None)
Quarter: 2011Q2

REPORT INFORMATION
  Report Type: 
  Country: None (occurrence: None)
  Receive Date: 20110427
  Receipt Date: 20091105
  Transmission Date: 20111010
  Serious: Yes (Death, Other)
  Sender: FDA-Public Use
  Company Number: US-BAYER-2011-009680

PATIENT
  Age: 55 Year
  Sex: Male
  Weight: 81 kg

DRUGS (21)
  1. TRASYLOL [Suspect]
     Indication: CORONARY ARTERY BYPASS
     Dosage: 200 ML, UNK
     Route: 042
     Dates: start: 20030117
  2. LUMIGAN [Concomitant]
     Dosage: 0.03%
  3. SOLU-MEDROL [Concomitant]
     Dosage: 500 MG, UNK
     Route: 042
     Dates: start: 20030117
  4. CALCIUM GLUCONATE [Concomitant]
     Dosage: 2000 MG, UNK
     Route: 042
     Dates: start: 20030117
  5. VANCOMYCIN [Concomitant]
     Dosage: 1.5 G, UNK
     Route: 042
     Dates: start: 20030117
  6. PLATELETS [Concomitant]
     Dosage: 8 U, UNK
     Route: 042
     Dates: start: 20030117
  7. TRASYLOL [Suspect]
     Indication: AORTIC VALVE REPLACEMENT
     Dosage: 25CC/HR
     Route: 042
     Dates: end: 20030117
  8. PROTAMINE SULFATE [Concomitant]
     Dosage: 360 MG, UNK
     Route: 042
     Dates: start: 20030117
  9. ALBUTEROL [Concomitant]
     Dosage: .0083%, INHALER
  10. LOTENSIN [Concomitant]
     Dosage: 20 MG, QD
     Route: 048
  11. HEPARIN [Concomitant]
     Dosage: 2000 U, UNK
     Route: 042
     Dates: start: 20030117
  12. PREDNISONE [Concomitant]
     Dosage: 15 MG, QD
     Route: 048
  13. HYDROCHLOROTHIAZIDE [Concomitant]
     Dosage: 25 MG, QD
     Route: 048
  14. NITROTAB [Concomitant]
     Dosage: 0.04 MG, ORAL/SUBLINGUAL
     Route: 060
  15. AZMACORT [Concomitant]
     Dosage: 100 ?G, 2 PUFFS, TID, INHALER
  16. PHENYLEPHRINE [PHENYLEPHRINE] [Concomitant]
     Dosage: 200 ?G, UNK
     Route: 042
     Dates: start: 20030117
  17. FENTANYL [Concomitant]
     Dosage: 1000 MCG
     Route: 042
     Dates: start: 20030117
  18. VERSED [Concomitant]
     Dosage: 5 MG, UNK
     Route: 042
     Dates: start: 20030117
  19. PANCURONIUM BROMIDE [Concomitant]
     Dosage: 14 MG, UNK
     Route: 042
     Dates: start: 20030117
  20. SINGULAIR [Concomitant]
     Dosage: 10 MG, QD
     Route: 048
  21. SODIUM BICARBONATE [Concomitant]
     Indication: ACIDOSIS
     Dosage: 150 MEQ
     Route: 042
     Dates: start: 20030117

REACTIONS (11)
  - RENAL FAILURE [None]
  - DEATH [None]
  - EMOTIONAL DISTRESS [None]
  - ANXIETY [None]
  - UNEVALUABLE EVENT [None]
  - MULTI-ORGAN FAILURE [None]
  - RENAL INJURY [None]
  - RENAL IMPAIRMENT [None]
  - STRESS [None]
  - FEAR [None]
  - PAIN [None]
